FAERS Safety Report 9029503 (Version 2)
Quarter: 2013Q1

REPORT INFORMATION
  Report Type: Spontaneous
  Country: AR (occurrence: AR)
  Receive Date: 20130125
  Receipt Date: 20130218
  Transmission Date: 20140127
  Serious: Yes (Other)
  Sender: FDA-Public Use
  Company Number: AR-AMGEN-ARGSP2013005188

PATIENT
  Age: 62 Year
  Sex: Female

DRUGS (3)
  1. ENBREL [Suspect]
     Indication: RHEUMATOID ARTHRITIS
     Dosage: 50 MG, WEEKLY
     Route: 058
     Dates: start: 20071001
  2. LOTRIAL                            /00574902/ [Concomitant]
     Indication: HYPERTENSION
     Dosage: UNK
  3. CALCIUM [Concomitant]
     Indication: OSTEOPOROSIS
     Dosage: UNK

REACTIONS (2)
  - Emotional disorder [Recovered/Resolved]
  - Rheumatoid arthritis [Recovered/Resolved]
